FAERS Safety Report 9348585 (Version 1)
Quarter: 2013Q2

REPORT INFORMATION
  Report Type: Spontaneous
  Country: US (occurrence: US)
  Receive Date: 20130614
  Receipt Date: 20130614
  Transmission Date: 20140414
  Serious: No
  Sender: FDA-Public Use
  Company Number: US-PFIZER INC-2013174023

PATIENT
  Age: 34 Year
  Sex: Female
  Weight: 114.29 kg

DRUGS (5)
  1. AMOXICILLIN [Suspect]
  2. VANCOMYCIN HCL [Suspect]
  3. ZMAX [Suspect]
  4. ZOSYN [Suspect]
  5. SCOPOLAMINE [Suspect]

REACTIONS (1)
  - Drug hypersensitivity [Unknown]
